FAERS Safety Report 7910680-1 (Version None)
Quarter: 2011Q4

REPORT INFORMATION
  Report Type: 
  Country: None (occurrence: None)
  Receive Date: 20111111
  Receipt Date: 20111102
  Transmission Date: 20120403
  Serious: Yes (Hospitalization)
  Sender: FDA-Public Use
  Company Number: DE-ASTRAZENECA-2011SE66322

PATIENT
  Age: 58 Year
  Sex: Male
  Weight: 67 kg

DRUGS (3)
  1. CIPRO [Suspect]
     Indication: FEBRILE INFECTION
     Route: 042
     Dates: start: 20110422, end: 20110426
  2. MEROPENEM [Suspect]
     Indication: FEBRILE INFECTION
     Route: 042
     Dates: start: 20110422, end: 20110426
  3. METAMIZOL [Suspect]
     Indication: NECK PAIN
     Route: 048
     Dates: start: 20110425, end: 20110426

REACTIONS (2)
  - THROMBOCYTOPENIA [None]
  - LEUKOPENIA [None]
